APPROVED DRUG PRODUCT: EZETIMIBE
Active Ingredient: EZETIMIBE
Strength: 10MG
Dosage Form/Route: TABLET;ORAL
Application: A208332 | Product #001
Applicant: APOTEX INC
Approved: Jun 12, 2017 | RLD: No | RS: No | Type: DISCN